FAERS Safety Report 17116890 (Version 1)
Quarter: 2019Q4

REPORT INFORMATION
  Report Type: Report from Study
  Country: IT (occurrence: IT)
  Receive Date: 20191205
  Receipt Date: 20191205
  Transmission Date: 20200122
  Serious: Yes (Hospitalization)
  Sender: FDA-Public Use
  Company Number: IT-MYLANLABS-2019M1118756

PATIENT
  Age: 72 Year
  Sex: Female

DRUGS (4)
  1. DOXAZOSIN [Concomitant]
     Active Substance: DOXAZOSIN MESYLATE
     Dosage: 1 DOSAGE FORM
     Route: 048
  2. LEVOFLOXACIN. [Suspect]
     Active Substance: LEVOFLOXACIN
     Indication: PULMONARY OEDEMA
     Dosage: 1 DOSAGE FORM, QD
     Route: 048
     Dates: start: 20190221, end: 20190302
  3. ENALAPRIL [Concomitant]
     Active Substance: ENALAPRIL
     Dosage: 1 DOSAGE FORM
     Route: 048
  4. CEFIXORAL [Suspect]
     Active Substance: CEFIXIME
     Indication: PULMONARY OEDEMA
     Dosage: 1 DOSAGE FORM, QD
     Route: 048
     Dates: start: 20190221, end: 20190302

REACTIONS (1)
  - Enterocolitis [Recovered/Resolved]

NARRATIVE: CASE EVENT DATE: 20190302
